FAERS Safety Report 24701518 (Version 1)
Quarter: 2024Q4

REPORT INFORMATION
  Report Type: Spontaneous
  Country: FR (occurrence: FR)
  Receive Date: 20241205
  Receipt Date: 20241205
  Transmission Date: 20250115
  Serious: Yes (Hospitalization, Other)
  Sender: NOVO NORDISK
  Company Number: FR-NOVOPROD-1328000

PATIENT
  Sex: Male
  Weight: 110 kg

DRUGS (14)
  1. OZEMPIC [Suspect]
     Active Substance: SEMAGLUTIDE
     Indication: Product used for unknown indication
     Dosage: 1 MG
  2. ENTRESTO [Concomitant]
     Active Substance: SACUBITRIL\VALSARTAN
     Dosage: 2 DF, QD
     Dates: start: 2019
  3. FUROSEMIDE [Concomitant]
     Active Substance: FUROSEMIDE
     Dosage: 1 DF, QD
     Dates: start: 2019
  4. JARDIANCE [Concomitant]
     Active Substance: EMPAGLIFLOZIN
     Dosage: 1 DF, QD
  5. ELIQUIS [Concomitant]
     Active Substance: APIXABAN
     Dosage: 2 DF, QD
     Dates: start: 2019
  6. ATORVASTATIN [Concomitant]
     Active Substance: ATORVASTATIN
     Dosage: 1 DF, QD
     Dates: start: 2019
  7. DOLIPRANE [Concomitant]
     Active Substance: ACETAMINOPHEN
     Dosage: 1,DF,SINGLE9EVERY MONTH)
     Dates: start: 2019
  8. XANAX [Concomitant]
     Active Substance: ALPRAZOLAM
     Dosage: 3 DF, QD
     Dates: start: 2019
  9. CHOLECALCIFEROL [Concomitant]
     Active Substance: CHOLECALCIFEROL
     Dosage: 1 DF, QD
     Dates: start: 2020
  10. PANTOPRAZOLE [Concomitant]
     Active Substance: PANTOPRAZOLE
     Dosage: 1 DF, QD
     Dates: start: 2024
  11. BISOPROLOL [Concomitant]
     Active Substance: BISOPROLOL
     Dosage: 2 DF, QD
     Dates: start: 2024
  12. PROZAC [Concomitant]
     Active Substance: FLUOXETINE HYDROCHLORIDE
     Dosage: 2 DF, QD
     Dates: start: 2020
  13. REPAGLINIDE [Concomitant]
     Active Substance: DULOXETINE HYDROCHLORIDE\REPAGLINIDE\TICAGRELOR
     Indication: Product used for unknown indication
     Dosage: 1 DF
  14. REPAGLINIDE [Concomitant]
     Active Substance: DULOXETINE HYDROCHLORIDE\REPAGLINIDE\TICAGRELOR
     Dosage: 2 DF

REACTIONS (4)
  - Food intolerance [Unknown]
  - Lactic acidosis [Unknown]
  - Acute kidney injury [Unknown]
  - Product dispensing error [Unknown]
